FAERS Safety Report 19409250 (Version 2)
Quarter: 2021Q2

REPORT INFORMATION
  Report Type: Spontaneous
  Country: GB (occurrence: GB)
  Receive Date: 20210614
  Receipt Date: 20210623
  Transmission Date: 20210717
  Serious: Yes (Disabling, Other)
  Sender: FDA-Public Use
  Company Number: GB-ACCORD-227577

PATIENT
  Age: 38 Year
  Sex: Female
  Weight: 74.38 kg

DRUGS (1)
  1. SERTRALINE [Suspect]
     Active Substance: SERTRALINE HYDROCHLORIDE
     Indication: DEPRESSION
     Route: 048
     Dates: start: 2017, end: 2019

REACTIONS (3)
  - Migraine [Recovered/Resolved]
  - Mental impairment [Recovered/Resolved]
  - Balance disorder [Recovered/Resolved]
